FAERS Safety Report 18178208 (Version 2)
Quarter: 2020Q4

REPORT INFORMATION
  Report Type: Report from Study
  Country: JP (occurrence: JP)
  Receive Date: 20200820
  Receipt Date: 20201102
  Transmission Date: 20210113
  Serious: Yes (Other)
  Sender: FDA-Public Use
  Company Number: JP-GLAXOSMITHKLINE-JP2020JPN161631

PATIENT
  Age: 57 Year
  Sex: Female
  Weight: 41 kg

DRUGS (26)
  1. BELIMUMAB [Suspect]
     Active Substance: BELIMUMAB
     Indication: SYSTEMIC LUPUS ERYTHEMATOSUS
     Dosage: 400 MG, EVERY 2 WEEKS
     Route: 041
     Dates: start: 20180216, end: 20180315
  2. NEORAL [Suspect]
     Active Substance: CYCLOSPORINE
     Indication: SYSTEMIC LUPUS ERYTHEMATOSUS
     Dosage: UNK
     Route: 048
  3. PREDNISOLONE. [Suspect]
     Active Substance: PREDNISOLONE
     Dosage: 13 MG, 1D
     Route: 048
     Dates: start: 20180220, end: 20180315
  4. BENLYSTA [Concomitant]
     Active Substance: BELIMUMAB
     Indication: SYSTEMIC LUPUS ERYTHEMATOSUS
     Dosage: 200 MG, WE
     Dates: start: 20190108, end: 20190219
  5. CARBAZOCHROME SODIUM SULFONATE HYDRATE [Concomitant]
     Indication: PROPHYLAXIS
  6. PREDNISOLONE. [Suspect]
     Active Substance: PREDNISOLONE
     Indication: SYSTEMIC LUPUS ERYTHEMATOSUS
     Dosage: 14 MG, 1D
     Route: 048
     Dates: start: 20180216, end: 20180219
  7. SALOBEL [Concomitant]
     Active Substance: ALLOPURINOL
     Dosage: UNK
  8. ITRIZOLE ORAL SOLUTION [Concomitant]
  9. RISUMIC [Concomitant]
     Active Substance: AMEZINIUM METILSULFATE
  10. BELIMUMAB [Suspect]
     Active Substance: BELIMUMAB
     Dosage: 10 MG/KG, EVERY 4 WEEKS
     Route: 041
     Dates: start: 20180814, end: 20181204
  11. PREDNISOLONE. [Suspect]
     Active Substance: PREDNISOLONE
     Dosage: 11 MG, 1D
     Route: 048
     Dates: start: 20180413, end: 20180424
  12. PREDNISOLONE. [Suspect]
     Active Substance: PREDNISOLONE
     Dosage: 12 MG, 1D
     Route: 048
     Dates: start: 20180316, end: 20180412
  13. PREDNISOLONE. [Suspect]
     Active Substance: PREDNISOLONE
     Dosage: 9 MG, 1D
     Route: 048
     Dates: start: 20180523, end: 20180619
  14. TRAZENTA [Concomitant]
     Active Substance: LINAGLIPTIN
  15. TEPRENONE CAPSULES [Concomitant]
  16. PRALIA [Concomitant]
     Active Substance: DENOSUMAB
     Dosage: UNK
  17. PREDNISOLONE. [Suspect]
     Active Substance: PREDNISOLONE
     Dosage: 7 MG, 1D
     Route: 048
     Dates: start: 20180718, end: 20180911
  18. PREDNISOLONE. [Concomitant]
     Active Substance: PREDNISOLONE
     Dosage: UNK
  19. DAIPHEN [Concomitant]
     Active Substance: SULFAMETHOXAZOLE\TRIMETHOPRIM
     Indication: ANTIFUNGAL PROPHYLAXIS
  20. ITRIZOLE (ITRACONAZOLE) [Concomitant]
     Indication: ANTIFUNGAL PROPHYLAXIS
  21. BELIMUMAB [Suspect]
     Active Substance: BELIMUMAB
     Dosage: 400 MG, EVERY 4 WEEKS
     Route: 041
     Dates: start: 20180424, end: 20180802
  22. PREDNISOLONE. [Suspect]
     Active Substance: PREDNISOLONE
     Dosage: 10 MG, 1D
     Route: 048
     Dates: start: 20180425, end: 20180522
  23. BIO-THREE [Concomitant]
     Active Substance: HERBALS
     Indication: PROPHYLAXIS
  24. PREDNISOLONE. [Suspect]
     Active Substance: PREDNISOLONE
     Dosage: 6 MG, 1D
     Route: 048
     Dates: start: 20180912
  25. PREDNISOLONE. [Suspect]
     Active Substance: PREDNISOLONE
     Dosage: 8 MG, 1D
     Route: 048
     Dates: start: 20180620, end: 20180717
  26. RABEPRAZOLE SODIUM. [Concomitant]
     Active Substance: RABEPRAZOLE SODIUM
     Indication: PROPHYLAXIS

REACTIONS (4)
  - Cellulitis [Recovered/Resolved]
  - Contraindicated product prescribed [Unknown]
  - Cellulitis [Recovered/Resolved]
  - Cytomegalovirus infection [Recovered/Resolved]

NARRATIVE: CASE EVENT DATE: 20180412
